FAERS Safety Report 8992799 (Version 1)
Quarter: 2013Q1

REPORT INFORMATION
  Report Type: Spontaneous
  Country: US (occurrence: US)
  Receive Date: 20130102
  Receipt Date: 20130102
  Transmission Date: 20140127
  Serious: No
  Sender: FDA-Public Use
  Company Number: US-009507513-1212USA010621

PATIENT
  Sex: Male

DRUGS (1)
  1. SINGULAIR [Suspect]
     Dosage: 10 MG, QPM
     Route: 048
     Dates: start: 201210

REACTIONS (2)
  - Accidental overdose [Unknown]
  - No adverse event [Unknown]
